FAERS Safety Report 25337880 (Version 1)
Quarter: 2025Q2

REPORT INFORMATION
  Report Type: Spontaneous
  Country: US (occurrence: US)
  Receive Date: 20250520
  Receipt Date: 20250520
  Transmission Date: 20250717
  Serious: No
  Sender: JOHNSON AND JOHNSON
  Company Number: US-JNJFOC-20250518225

PATIENT
  Age: 62 Year
  Sex: Male

DRUGS (1)
  1. TREMFYA [Suspect]
     Active Substance: GUSELKUMAB
     Indication: Crohn^s disease
     Route: 058
     Dates: start: 20250512, end: 20250512

REACTIONS (1)
  - Injection site reaction [Recovering/Resolving]

NARRATIVE: CASE EVENT DATE: 20250512
